FAERS Safety Report 16792570 (Version 1)
Quarter: 2019Q3

REPORT INFORMATION
  Report Type: Spontaneous
  Country: JP (occurrence: JP)
  Receive Date: 20190910
  Receipt Date: 20190910
  Transmission Date: 20191005
  Serious: Yes (Death, Other)
  Sender: FDA-Public Use
  Company Number: JP-GILEAD-2019-0426987

PATIENT
  Age: 55 Year
  Sex: Male

DRUGS (4)
  1. RIFXIMA [Concomitant]
     Active Substance: RIFAXIMIN
  2. EPCLUSA [Suspect]
     Active Substance: SOFOSBUVIR\VELPATASVIR
     Indication: HEPATIC CIRRHOSIS
     Dosage: UNK
     Route: 048
  3. EPCLUSA [Suspect]
     Active Substance: SOFOSBUVIR\VELPATASVIR
     Indication: HEPATITIS C
  4. SAMSCA [Concomitant]
     Active Substance: TOLVAPTAN

REACTIONS (1)
  - Hepatic failure [Fatal]
